FAERS Safety Report 7367983-1 (Version None)
Quarter: 2011Q1

REPORT INFORMATION
  Report Type: 
  Country: None (occurrence: None)
  Receive Date: 20110322
  Receipt Date: 20110318
  Transmission Date: 20110831
  Serious: Yes (Death, Hospitalization)
  Sender: FDA-Public Use
  Company Number: US-B.I. PHARMACEUTICALS,INC./RIDGEFIELD-2011-BP-03036BP

PATIENT
  Age: 85 Year
  Sex: Female
  Weight: 65.31 kg

DRUGS (17)
  1. PRADAXA [Suspect]
     Indication: ATRIAL FIBRILLATION
     Dosage: 300 MG
     Route: 048
     Dates: start: 20101130
  2. ONGLYZA [Concomitant]
     Dosage: 2.5 MG
  3. FUROSEMIDE [Concomitant]
  4. ALLOPURINOL [Concomitant]
     Dosage: 100 MG
  5. CLONIDINE [Concomitant]
     Dosage: 0.6 MG
  6. ASPIRIN [Concomitant]
  7. METOPROLOL [Concomitant]
     Dosage: 200 MG
  8. POTASSIUM CHLORIDE [Concomitant]
     Dosage: 20 MEQ
  9. LIPITOR [Concomitant]
  10. NORVASC [Concomitant]
     Dosage: 10 MG
  11. AMIODARONE HCL [Concomitant]
     Dosage: 200 MG
  12. DABIGATRAN [Concomitant]
     Dosage: 150 MG
  13. LISINOPRIL [Concomitant]
  14. VITAMIN D [Concomitant]
  15. GLIMEPIRIDE [Concomitant]
  16. CENTRUM SILVER [Concomitant]
  17. FERROUS SULFATE TAB [Concomitant]

REACTIONS (11)
  - DEATH [None]
  - DIARRHOEA [None]
  - MUSCLE SPASMS [None]
  - INTESTINAL INFARCTION [None]
  - CHEST PAIN [None]
  - CARDIAC FAILURE CHRONIC [None]
  - ATRIAL FIBRILLATION [None]
  - HEPATIC FAILURE [None]
  - NECROSIS [None]
  - RENAL FAILURE ACUTE [None]
  - CONSTIPATION [None]
